FAERS Safety Report 20778585 (Version 2)
Quarter: 2024Q4

REPORT INFORMATION
  Report Type: Report from Study
  Country: US (occurrence: US)
  Receive Date: 20220503
  Receipt Date: 20241021
  Transmission Date: 20250114
  Serious: Yes (Hospitalization)
  Sender: KYOWA
  Company Number: US-KYOWAKIRIN-2022BKK005975

PATIENT

DRUGS (4)
  1. CRYSVITA [Suspect]
     Active Substance: BUROSUMAB-TWZA
     Indication: Hereditary hypophosphataemic rickets
     Dosage: 50 MG, EVERY 28 DAYS
     Route: 058
     Dates: start: 20190403
  2. CRYSVITA [Suspect]
     Active Substance: BUROSUMAB-TWZA
     Dosage: 50 MG, EVERY 28 DAYS
     Route: 058
  3. CRYSVITA [Suspect]
     Active Substance: BUROSUMAB-TWZA
     Indication: Hereditary hypophosphataemic rickets
     Dosage: 50 MG, EVERY 28 DAYS
     Route: 058
     Dates: start: 20190403
  4. CRYSVITA [Suspect]
     Active Substance: BUROSUMAB-TWZA
     Dosage: 50 MG, EVERY 28 DAYS
     Route: 058

REACTIONS (2)
  - Hospitalisation [Unknown]
  - Emergency care [Unknown]
